FAERS Safety Report 23595731 (Version 1)
Quarter: 2024Q1

REPORT INFORMATION
  Report Type: Spontaneous
  Country: AU (occurrence: None)
  Receive Date: 20240305
  Receipt Date: 20240305
  Transmission Date: 20240410
  Serious: Yes (Other)
  Sender: FDA-Public Use
  Company Number: AU-ROCHE-3517459

PATIENT
  Age: 52 Year
  Sex: Female

DRUGS (2)
  1. RITUXIMAB [Suspect]
     Active Substance: RITUXIMAB
     Indication: Systemic lupus erythematosus
     Route: 065
  2. MYCOPHENOLATE MOFETIL [Suspect]
     Active Substance: MYCOPHENOLATE MOFETIL
     Indication: Systemic lupus erythematosus
     Route: 065

REACTIONS (10)
  - Angioedema [Unknown]
  - Off label use [Unknown]
  - Arthritis [Unknown]
  - Mouth ulceration [Unknown]
  - Rash [Unknown]
  - Neutropenia [Unknown]
  - Infusion related reaction [Unknown]
  - Lip swelling [Unknown]
  - Swollen tongue [Unknown]
  - Obstructive airways disorder [Unknown]
